FAERS Safety Report 4283613-X (Version None)
Quarter: 2004Q1

REPORT INFORMATION
  Report Type: 
  Country: None (occurrence: None)
  Receive Date: 20040129
  Receipt Date: 20040129
  Transmission Date: 20041129
  Serious: Yes (Hospitalization)
  Sender: FDA-Public Use
  Company Number: None

PATIENT
  Age: 71 Year
  Sex: Female
  Weight: 80.7 kg

DRUGS (7)
  1. WARFARIN SODIUM [Suspect]
     Indication: ATRIAL FIBRILLATION
     Dosage: 10MG PO QD
     Route: 048
  2. WARFARIN SODIUM [Suspect]
     Indication: MITRAL VALVE DISEASE
     Dosage: 10MG PO QD
     Route: 048
  3. CLONIDINE [Concomitant]
  4. PEPCID [Concomitant]
  5. METOPROLOL [Concomitant]
  6. RENAGEL [Concomitant]
  7. DULCOLAX [Concomitant]

REACTIONS (2)
  - ARTERIOVENOUS GRAFT SITE HAEMORRHAGE [None]
  - INTERNATIONAL NORMALISED RATIO DECREASED [None]
